FAERS Safety Report 8424160-0 (Version None)
Quarter: 2012Q2

REPORT INFORMATION
  Report Type: 
  Country: None (occurrence: None)
  Receive Date: 20120608
  Receipt Date: 20120229
  Transmission Date: 20120825
  Serious: No
  Sender: FDA-Public Use
  Company Number: US-ASTRAZENECA-2012SE08887

PATIENT
  Sex: Female
  Weight: 61.2 kg

DRUGS (6)
  1. LORAZEPAM [Concomitant]
     Indication: SLEEP DISORDER
  2. LEXAPRO [Concomitant]
  3. PULMICORT FLEXHALER [Suspect]
     Indication: CHRONIC OBSTRUCTIVE PULMONARY DISEASE
     Dosage: 180 MCG, ONE PUFF BID
     Route: 055
     Dates: start: 20120101
  4. PRILOSEC [Suspect]
     Dosage: AT NIGHT
     Route: 048
  5. NASACORT [Concomitant]
  6. PULMICORT FLEXHALER [Suspect]
     Indication: ASTHMA
     Dosage: 180 MCG, ONE PUFF BID
     Route: 055
     Dates: start: 20120101

REACTIONS (3)
  - OFF LABEL USE [None]
  - CHEST DISCOMFORT [None]
  - COUGH [None]
